FAERS Safety Report 8011311-5 (Version None)
Quarter: 2011Q4

REPORT INFORMATION
  Report Type: 
  Country: None (occurrence: None)
  Receive Date: 20111228
  Receipt Date: 20111222
  Transmission Date: 20120403
  Serious: Yes (Life-Threatening, Other)
  Sender: FDA-Public Use
  Company Number: JP-PFIZER INC-2011265050

PATIENT
  Age: 79 Year
  Sex: Female
  Weight: 42 kg

DRUGS (19)
  1. LYRICA [Suspect]
     Dosage: 75 MG, 2X/DAY
     Route: 048
     Dates: start: 20110728, end: 20110831
  2. METHYCOBAL [Concomitant]
     Indication: NEUROPATHY PERIPHERAL
     Dosage: 1500 MG / DAY
     Route: 048
  3. MIYA BM [Concomitant]
     Dosage: UNK
     Route: 048
  4. LYRICA [Suspect]
     Dosage: 75 MG, 1X/DAY
     Route: 048
     Dates: start: 20110714, end: 20110727
  5. ZOSYN [Suspect]
     Indication: INFECTION
     Dosage: 4.5 G, 3X/DAY
     Route: 041
     Dates: start: 20110908, end: 20111013
  6. MAGNESIUM SULFATE [Concomitant]
     Indication: CONSTIPATION
     Dosage: 1000 MG/DAY
     Route: 048
     Dates: end: 20111017
  7. GASCON [Concomitant]
     Dosage: UNK
     Route: 048
  8. CONIEL [Concomitant]
     Dosage: UNK
     Route: 048
  9. RABEPRAZOLE SODIUM [Concomitant]
     Indication: GASTRIC ULCER
     Dosage: 10 MG / DAY
     Route: 048
     Dates: end: 20111021
  10. SUMILU STICK [Concomitant]
     Indication: PAIN
     Dosage: UNK
     Route: 048
  11. ZOSYN [Suspect]
     Indication: LIVER ABSCESS
  12. PRAVASTATIN SODIUM [Concomitant]
     Dosage: UNK
     Route: 048
  13. LYRICA [Suspect]
     Indication: NEUROPATHY PERIPHERAL
     Dosage: 25 MG, 1X/DAY
     Route: 048
     Dates: start: 20110707, end: 20110713
  14. GANATON [Concomitant]
     Dosage: UNK
     Route: 048
  15. LYRICA [Suspect]
     Dosage: 75 MG, 1X/DAY
     Route: 048
     Dates: start: 20111013, end: 20111016
  16. OFLOXACIN [Concomitant]
     Dosage: UNK
  17. DEPAS [Concomitant]
     Indication: INSOMNIA
     Dosage: 0.5 MG/ DAY
     Route: 048
     Dates: end: 20111104
  18. URSO 250 [Concomitant]
     Indication: LIVER ABSCESS
     Dosage: 300 MG / DAY
     Route: 048
     Dates: start: 20110906
  19. COSPANON [Concomitant]
     Indication: LIVER DISORDER
     Dosage: 120 MG / DAY
     Route: 048
     Dates: start: 20110906

REACTIONS (1)
  - TUBULOINTERSTITIAL NEPHRITIS [None]
